FAERS Safety Report 9053331 (Version 3)
Quarter: 2016Q1

REPORT INFORMATION
  Report Type: Spontaneous
  Country: IT (occurrence: IT)
  Receive Date: 20130207
  Receipt Date: 20160205
  Transmission Date: 20160526
  Serious: Yes (Hospitalization, Other)
  Sender: FDA-Public Use
  Company Number: IT-BRISTOL-MYERS SQUIBB COMPANY-17347022

PATIENT
  Age: 35 Year
  Sex: Male

DRUGS (3)
  1. CARBOLITHIUM [Concomitant]
     Active Substance: LITHIUM CARBONATE
     Indication: PRODUCT USED FOR UNKNOWN INDICATION
     Dosage: PLURIANNUAL
     Route: 065
  2. ABILIFY [Suspect]
     Active Substance: ARIPIPRAZOLE
     Indication: BIPOLAR DISORDER
     Dosage: 10 MG, BID
     Route: 048
     Dates: start: 201208, end: 201301
  3. TAVOR (LORAZEPAM) [Concomitant]
     Active Substance: LORAZEPAM
     Indication: PRODUCT USED FOR UNKNOWN INDICATION
     Dosage: 1 DF = 1 TAB
     Route: 065

REACTIONS (3)
  - Off label use [Unknown]
  - Deep vein thrombosis [Unknown]
  - Pulmonary embolism [Unknown]

NARRATIVE: CASE EVENT DATE: 201301
